FAERS Safety Report 7465706-9 (Version None)
Quarter: 2011Q2

REPORT INFORMATION
  Report Type: 
  Country: None (occurrence: None)
  Receive Date: 20110509
  Receipt Date: 20110422
  Transmission Date: 20111010
  Serious: Yes (Hospitalization)
  Sender: FDA-Public Use
  Company Number: B0714943A

PATIENT
  Sex: Male
  Weight: 85 kg

DRUGS (1)
  1. ARIXTRA [Suspect]
     Indication: THROMBOSIS PROPHYLAXIS
     Dosage: 2.5MG PER DAY
     Route: 058
     Dates: start: 20070911, end: 20070917

REACTIONS (3)
  - HAEMORRHAGIC ANAEMIA [None]
  - OFF LABEL USE [None]
  - POST PROCEDURAL HAEMORRHAGE [None]
